FAERS Safety Report 9475675 (Version 1)
Quarter: 2013Q3

REPORT INFORMATION
  Report Type: Spontaneous
  Country: AR (occurrence: AR)
  Receive Date: 20130826
  Receipt Date: 20130826
  Transmission Date: 20140515
  Serious: Yes (Hospitalization)
  Sender: FDA-Public Use
  Company Number: PHHY2013AR091813

PATIENT
  Age: 13 Year
  Sex: Male

DRUGS (1)
  1. LAPENAX [Suspect]
     Indication: BIPOLAR DISORDER
     Dosage: UNK QD
     Route: 048
     Dates: start: 201301, end: 20130125

REACTIONS (2)
  - Dehydration [Recovered/Resolved]
  - Renal failure [Recovered/Resolved]
